FAERS Safety Report 11428553 (Version 1)
Quarter: 2015Q3

REPORT INFORMATION
  Report Type: Spontaneous
  Country: US (occurrence: None)
  Receive Date: 20150827
  Receipt Date: 20150827
  Transmission Date: 20151125
  Serious: Yes (Life-Threatening, Disabling, Other)
  Sender: FDA-Public Use
  Company Number: None

PATIENT
  Age: 42 Year
  Sex: Male
  Weight: 92.99 kg

DRUGS (5)
  1. BEZAFIBRATE [Concomitant]
     Active Substance: BEZAFIBRATE
  2. LOSARTAN. [Concomitant]
     Active Substance: LOSARTAN
  3. SINGULAIR [Suspect]
     Active Substance: MONTELUKAST SODIUM
     Indication: ASTHMA
     Dates: start: 20141114, end: 20150325
  4. VITAMIN B COMPLEX [Concomitant]
     Active Substance: CYANOCOBALAMIN\DEXPANTHENOL\NIACINAMIDE\PYRIDOXINE HYDROCHLORIDE\RIBOFLAVIN 5^-PHOSPHATE SODIUM\THIAMINE HYDROCHLORIDE\VITAMIN B COMPLEX
  5. L-CARNATINE [Concomitant]

REACTIONS (4)
  - Suicidal ideation [None]
  - Depression [None]
  - Anger [None]
  - Anxiety [None]

NARRATIVE: CASE EVENT DATE: 20141221
